FAERS Safety Report 20705658 (Version 4)
Quarter: 2022Q4

REPORT INFORMATION
  Report Type: Spontaneous
  Country: US (occurrence: US)
  Receive Date: 20220413
  Receipt Date: 20221227
  Transmission Date: 20230113
  Serious: Yes (Other)
  Sender: FDA-Public Use
  Company Number: US-PFIZER INC-202101732970

PATIENT
  Age: 76 Year
  Sex: Female
  Weight: 89.342 kg

DRUGS (3)
  1. IBRANCE [Suspect]
     Active Substance: PALBOCICLIB
     Indication: Breast cancer female
     Dosage: 125 MG
  2. IBRANCE [Suspect]
     Active Substance: PALBOCICLIB
     Dosage: 100 MG
  3. FULVESTRANT [Concomitant]
     Active Substance: FULVESTRANT
     Indication: Breast cancer
     Dosage: UNK
     Dates: start: 20120712

REACTIONS (5)
  - Pneumonia [Recovered/Resolved with Sequelae]
  - Tumour marker increased [Unknown]
  - Stomatitis [Unknown]
  - Cough [Recovered/Resolved with Sequelae]
  - Neoplasm progression [Unknown]
